FAERS Safety Report 4889304-6 (Version None)
Quarter: 2006Q1

REPORT INFORMATION
  Report Type: 
  Country: None (occurrence: None)
  Receive Date: 20060120
  Receipt Date: 20060120
  Transmission Date: 20060701
  Serious: Yes (Other)
  Sender: FDA-Public Use
  Company Number: None

PATIENT
  Age: 48 Year
  Sex: Male
  Weight: 51.2565 kg

DRUGS (1)
  1. GLEEVEC [Suspect]
     Indication: GASTROINTESTINAL STROMAL TUMOUR
     Dosage: 400 MG PO DAILY
     Route: 048
     Dates: start: 20050712

REACTIONS (4)
  - LYMPHADENOPATHY [None]
  - MULTIPLE SCLEROSIS [None]
  - SPINAL CORD DISORDER [None]
  - URINARY INCONTINENCE [None]
